FAERS Safety Report 5147124-1 (Version None)
Quarter: 2006Q4

REPORT INFORMATION
  Report Type: 
  Country: None (occurrence: None)
  Receive Date: 20061108
  Receipt Date: 20061108
  Transmission Date: 20070319
  Serious: Yes (Other)
  Sender: FDA-Public Use
  Company Number: None

PATIENT

DRUGS (2)
  1. WOMENS ONE VITAMINS       EQUATE/ WALMART [Suspect]
     Indication: VITAMIN SUPPLEMENTATION
     Dosage: 1DAILY   DAILY BY MOUTH
     Route: 048
     Dates: start: 20061001, end: 20061006
  2. WOMENS ONE VITAMINS         EQUATE/ WALMART [Suspect]

REACTIONS (3)
  - ALOPECIA [None]
  - EXPIRED DRUG ADMINISTERED [None]
  - FEAR [None]
